FAERS Safety Report 5242294-9 (Version None)
Quarter: 2007Q1

REPORT INFORMATION
  Report Type: 
  Country: None (occurrence: None)
  Receive Date: 20070216
  Receipt Date: 20070216
  Transmission Date: 20070707
  Serious: No
  Sender: FDA-Public Use
  Company Number: None

PATIENT
  Age: 61 Year
  Sex: Female
  Weight: 87.7 kg

DRUGS (1)
  1. NOVOLOG [Suspect]
     Indication: DIABETES MELLITUS
     Dosage: 24 UNITS BEFORE MEALS SUBCUT
     Route: 058
     Dates: start: 20070209, end: 20070210

REACTIONS (1)
  - PRURITUS GENERALISED [None]
